FAERS Safety Report 23814521 (Version 1)
Quarter: 2024Q2

REPORT INFORMATION
  Report Type: Spontaneous
  Country: US (occurrence: US)
  Receive Date: 20240503
  Receipt Date: 20240503
  Transmission Date: 20240716
  Serious: No
  Sender: FDA-Public Use
  Company Number: US-Nobelpharma America, LLC-NPA-2024-00688

PATIENT
  Sex: Female
  Weight: 79 kg

DRUGS (3)
  1. HYFTOR [Suspect]
     Active Substance: SIROLIMUS
     Indication: Tuberous sclerosis complex
     Route: 061
     Dates: start: 20230717
  2. HYFTOR [Suspect]
     Active Substance: SIROLIMUS
     Indication: Angiofibroma
  3. KEPPRA [Concomitant]
     Active Substance: LEVETIRACETAM

REACTIONS (1)
  - Condition aggravated [Unknown]
